FAERS Safety Report 8604363-2 (Version None)
Quarter: 2012Q3

REPORT INFORMATION
  Report Type: 
  Country: None (occurrence: None)
  Receive Date: 20120806
  Receipt Date: 20120806
  Transmission Date: 20120928
  Serious: No
  Sender: FDA-Public Use
  Company Number: None

PATIENT
  Age: 44 Year
  Sex: Male
  Weight: 83.9154 kg

DRUGS (1)
  1. ATORVASTATIN [Suspect]
     Indication: BLOOD CHOLESTEROL INCREASED
     Dosage: 20MG DAILY PO
     Route: 048
     Dates: start: 20120711, end: 20120716

REACTIONS (5)
  - HYPOAESTHESIA [None]
  - PRODUCT SUBSTITUTION ISSUE [None]
  - FEELING DRUNK [None]
  - FEELING ABNORMAL [None]
  - DIZZINESS [None]
